FAERS Safety Report 4821480-3 (Version None)
Quarter: 2005Q4

REPORT INFORMATION
  Report Type: 
  Country: None (occurrence: None)
  Receive Date: 20051107
  Receipt Date: 20050329
  Transmission Date: 20060501
  Serious: Yes (Hospitalization)
  Sender: FDA-Public Use
  Company Number: US-GLAXOSMITHKLINE-A0552414A

PATIENT
  Age: 11 Year
  Sex: Female

DRUGS (2)
  1. PAXIL CR [Suspect]
     Indication: DEPRESSION
     Dosage: 12.5MG PER DAY
     Route: 048
     Dates: start: 20030926, end: 20040201
  2. TYLENOL (CAPLET) [Suspect]
     Dosage: 51TAB SINGLE DOSE
     Route: 048

REACTIONS (6)
  - ANGER [None]
  - INTENTIONAL OVERDOSE [None]
  - IRRITABILITY [None]
  - OVERDOSE [None]
  - SUICIDAL IDEATION [None]
  - SUICIDE ATTEMPT [None]
